FAERS Safety Report 21022559 (Version 1)
Quarter: 2022Q2

REPORT INFORMATION
  Report Type: Spontaneous
  Country: US (occurrence: US)
  Receive Date: 20220629
  Receipt Date: 20220629
  Transmission Date: 20220720
  Serious: Yes (Hospitalization, Other)
  Sender: FDA-Public Use
  Company Number: US-BRISTOL-MYERS SQUIBB COMPANY-2022-058741

PATIENT
  Age: 72 Year
  Sex: Female
  Weight: 49.89 kg

DRUGS (1)
  1. REVLIMID [Suspect]
     Active Substance: LENALIDOMIDE
     Indication: Follicular lymphoma
     Dosage: DOSE : 15 MG;     FREQ : 21 DAYS ON, 7 DAYS OFF
     Route: 048
     Dates: start: 20220311

REACTIONS (3)
  - COVID-19 [Recovered/Resolved]
  - Rash [Recovered/Resolved]
  - Pulmonary oedema [Recovered/Resolved]

NARRATIVE: CASE EVENT DATE: 20220501
